FAERS Safety Report 7007178-4 (Version None)
Quarter: 2010Q3

REPORT INFORMATION
  Report Type: 
  Country: None (occurrence: None)
  Receive Date: 20100920
  Receipt Date: 20100913
  Transmission Date: 20110219
  Serious: Yes (Hospitalization, Other)
  Sender: FDA-Public Use
  Company Number: 018306

PATIENT
  Sex: Female

DRUGS (1)
  1. KEPPRA [Suspect]
     Dosage: (750 MG, 500 MG QAM AND 250 MG Q PM)
     Dates: start: 20061001

REACTIONS (4)
  - ATRIOVENTRICULAR BLOCK [None]
  - BLOOD UREA INCREASED [None]
  - GLOMERULAR FILTRATION RATE DECREASED [None]
  - URINARY TRACT INFECTION [None]
